FAERS Safety Report 9135104 (Version 2)
Quarter: 2013Q1

REPORT INFORMATION
  Report Type: Report from Study
  Country: US (occurrence: US)
  Receive Date: 20130304
  Receipt Date: 20130313
  Transmission Date: 20140127
  Serious: Yes (Life-Threatening, Hospitalization)
  Sender: FDA-Public Use
  Company Number: US-ACTELION-A-NJ2013-79958

PATIENT
  Age: 45 Year
  Sex: Female

DRUGS (4)
  1. TRACLEER [Suspect]
     Indication: PULMONARY ARTERIAL HYPERTENSION
     Dosage: UNK
     Route: 048
  2. TYVASO [Suspect]
  3. SILDENAFIL [Concomitant]
  4. LASIX [Concomitant]

REACTIONS (3)
  - Haemorrhage [Recovering/Resolving]
  - Cardiac arrest [Recovering/Resolving]
  - Hypoxia [Recovering/Resolving]
